FAERS Safety Report 9300890 (Version 1)
Quarter: 2013Q2

REPORT INFORMATION
  Report Type: Spontaneous
  Country: US (occurrence: US)
  Receive Date: 20130521
  Receipt Date: 20130521
  Transmission Date: 20140414
  Serious: No
  Sender: FDA-Public Use
  Company Number: US-B.I. PHARMACEUTICALS,INC./RIDGEFIELD-2013-BI-13994BP

PATIENT
  Sex: Female
  Weight: 55 kg

DRUGS (4)
  1. SPIRIVA [Suspect]
     Indication: CHRONIC OBSTRUCTIVE PULMONARY DISEASE
     Dosage: 18 MCG
     Route: 055
  2. LISINOPRIL [Concomitant]
     Indication: HYPERTENSION
     Dosage: 2.5 MG
     Route: 048
  3. WARFARIN [Concomitant]
     Indication: CARDIAC ASSISTANCE DEVICE USER
     Dosage: SUNDAY, WEDNESDAY, FRIDAY-3 MG; TUESDAY, THURSDAY, SATURDAY-2 MG.
     Route: 048
  4. METOPROLOL [Concomitant]
     Indication: HYPERTENSION
     Dosage: 25 MG
     Route: 048

REACTIONS (3)
  - Amnesia [Not Recovered/Not Resolved]
  - Constipation [Recovered/Resolved]
  - Hypoacusis [Not Recovered/Not Resolved]
